FAERS Safety Report 15717403 (Version 1)
Quarter: 2018Q4

REPORT INFORMATION
  Report Type: Spontaneous
  Country: US (occurrence: US)
  Receive Date: 20181129
  Receipt Date: 20181129
  Transmission Date: 20190205
  Serious: No
  Sender: FDA-Public Use
  Company Number: None

PATIENT

DRUGS (2)
  1. MOMETASONE FUROATE. [Suspect]
     Active Substance: MOMETASONE FUROATE
     Route: 045
  2. FLUTICASONE. [Suspect]
     Active Substance: FLUTICASONE
     Route: 045

REACTIONS (3)
  - Product label confusion [None]
  - Product dispensing error [None]
  - Product label on wrong product [None]
